FAERS Safety Report 14991880 (Version 1)
Quarter: 2018Q2

REPORT INFORMATION
  Report Type: Report from Study
  Country: US (occurrence: US)
  Receive Date: 20180608
  Receipt Date: 20180608
  Transmission Date: 20180711
  Serious: Yes (Death, Hospitalization)
  Sender: FDA-Public Use
  Company Number: US-ACTELION-A-NJ2017-163780

PATIENT
  Age: 85 Year
  Sex: Female

DRUGS (1)
  1. OPSUMIT [Suspect]
     Active Substance: MACITENTAN
     Indication: PULMONARY ARTERIAL HYPERTENSION
     Dosage: 10 MG, QD
     Route: 048
     Dates: start: 20171006, end: 20180403

REACTIONS (12)
  - Respiratory failure [Not Recovered/Not Resolved]
  - Wound [Unknown]
  - Death [Fatal]
  - Vomiting [Recovered/Resolved]
  - Pulmonary hypertension [Not Recovered/Not Resolved]
  - Fall [Unknown]
  - Dehydration [Recovered/Resolved]
  - Nausea [Recovered/Resolved]
  - Anaemia [Unknown]
  - Asthenia [Recovered/Resolved]
  - Urinary tract infection [Unknown]
  - Hypoacusis [Not Recovered/Not Resolved]

NARRATIVE: CASE EVENT DATE: 201712
